FAERS Safety Report 9197125 (Version 1)
Quarter: 2013Q1

REPORT INFORMATION
  Report Type: Report from Study
  Country: ZA (occurrence: ZA)
  Receive Date: 20130328
  Receipt Date: 20130328
  Transmission Date: 20140127
  Serious: Yes (Hospitalization)
  Sender: FDA-Public Use
  Company Number: ZA-ROCHE-1206382

PATIENT
  Sex: Female

DRUGS (4)
  1. MIRCERA [Suspect]
     Indication: PRODUCT USED FOR UNKNOWN INDICATION
     Route: 065
     Dates: start: 20110629
  2. MIRCERA [Suspect]
     Route: 065
     Dates: start: 20111205
  3. MIRCERA [Suspect]
     Route: 065
     Dates: start: 20120307
  4. MIRCERA [Suspect]
     Route: 058
     Dates: start: 20120712

REACTIONS (2)
  - Epistaxis [Unknown]
  - Cardiac disorder [Unknown]
